FAERS Safety Report 24706446 (Version 3)
Quarter: 2024Q4

REPORT INFORMATION
  Report Type: Spontaneous
  Country: IT (occurrence: IT)
  Receive Date: 20241206
  Receipt Date: 20241224
  Transmission Date: 20250115
  Serious: Yes (Hospitalization, Other)
  Sender: BAXTER
  Company Number: None

PATIENT
  Age: 87 Year
  Sex: Female
  Weight: 63 kg

DRUGS (9)
  1. ONDANSETRON [Suspect]
     Active Substance: ONDANSETRON
     Indication: Nausea
     Dosage: IN THE ER, WE ADMINISTERED, INTRAVENOUSLY, ONDANSETRON 4 MG
     Route: 042
     Dates: start: 20241103, end: 20241103
  2. ELIQUIS [Suspect]
     Active Substance: APIXABAN
     Indication: Thrombosis prophylaxis
     Dosage: ELIQUIS 2.5 MG: 1 TAB AT 8:00 AND 1 TAB AT 20:00. THE DATE SHE STARTED TAKING THE DRUG IS NOT KNOWN
     Route: 048
  3. URAPIDIL [Suspect]
     Active Substance: URAPIDIL
     Indication: Hypertensive emergency
     Dosage: IN THE ER, WE ADMINISTERED, INTRAVENOUSLY, 10 ML OF URAPIDIL
     Route: 042
     Dates: start: 20241103, end: 20241103
  4. AMLODIPINE [Concomitant]
     Active Substance: AMLODIPINE BESYLATE
     Indication: Hypertension
     Dosage: AMLODIPINE: 10 MG AT 8:00. THE DATE SHE STARTED TAKING THE DRUG IS NOT KNOWN.
     Route: 048
  5. NEBIVOLOL [Concomitant]
     Active Substance: NEBIVOLOL
     Indication: Hypertension
     Dosage: NEBIVOLOL: 5 MG AT 12:00. THE DATE THEY STARTED TAKING THE DRUG IS NOT KNOWN
     Route: 048
  6. OLMESARTAN MEDOXOMIL [Concomitant]
     Active Substance: OLMESARTAN MEDOXOMIL
     Indication: Hypertension
     Dosage: OLMESARTAN: 20 MG AT 8:00. THE DATE SHE STARTED TAKING THE DRUG IS NOT KNOWN
     Route: 048
  7. CARDURA [Concomitant]
     Active Substance: DOXAZOSIN MESYLATE
     Indication: Hypertension
     Dosage: CARDURA: 2 MG AT 20:00. THE DATE SHE STARTED TAKING THE DRUG IS NOT KNOWN
     Route: 048
  8. OMEPRAZOLE [Concomitant]
     Active Substance: OMEPRAZOLE
     Indication: Gastrooesophageal reflux disease
     Dosage: OMEPRAZOLE: 20 MG. THE DATE SHE STARTED TAKING THE DRUG IS NOT KNOWN
     Route: 048
  9. HALCION [Concomitant]
     Active Substance: TRIAZOLAM
     Indication: Insomnia
     Dosage: HALCION: 250 MCG AT 21:00. THE DATE SHE STARTED TAKING THE DRUG IS NOT KNOWN
     Route: 048

REACTIONS (2)
  - Cerebral haemorrhage [Recovering/Resolving]
  - Drug hypersensitivity [Recovered/Resolved]

NARRATIVE: CASE EVENT DATE: 20241103
